FAERS Safety Report 8458334 (Version 3)
Quarter: 2012Q4

REPORT INFORMATION
  Report Type: Report from Study
  Country: JP (occurrence: JP)
  Receive Date: 20120314
  Receipt Date: 20120906
  Transmission Date: 20130627
  Serious: Yes (Hospitalization, Other)
  Sender: FDA-Public Use
  Company Number: PHHY2012JP021336

PATIENT
  Sex: Male

DRUGS (3)
  1. CO-DIOVAN [Suspect]
     Indication: HYPERTENSION
     Dosage: 1 DF, daily
     Route: 048
     Dates: start: 20110208
  2. BAYASPIRIN [Concomitant]
     Dosage: 100 mg, UNK
     Route: 048
     Dates: start: 20110208
  3. OMEPRAL [Concomitant]
     Dosage: 10 mg, UNK
     Route: 048
     Dates: start: 20110208

REACTIONS (2)
  - Supraventricular tachycardia [Recovering/Resolving]
  - Palpitations [Recovering/Resolving]
